FAERS Safety Report 4451632-6 (Version None)
Quarter: 2004Q3

REPORT INFORMATION
  Report Type: 
  Country: None (occurrence: None)
  Receive Date: 20040915
  Receipt Date: 20040915
  Transmission Date: 20050211
  Serious: Yes (Other)
  Sender: FDA-Public Use
  Company Number: 04-0066PO

PATIENT
  Age: 4 Year
  Sex: Male

DRUGS (1)
  1. MEFENAMIC ACID [Suspect]
     Indication: PYREXIA
     Dosage: 20 ML, ONCE; PO
     Route: 048

REACTIONS (1)
  - MEDICATION ERROR [None]
